FAERS Safety Report 21542477 (Version 1)
Quarter: 2022Q4

REPORT INFORMATION
  Report Type: Spontaneous
  Country: US (occurrence: US)
  Receive Date: 20221102
  Receipt Date: 20221102
  Transmission Date: 20230113
  Serious: No
  Sender: FDA-Public Use
  Company Number: US-TEVA-2022-US-2816257

PATIENT
  Age: 56 Year
  Sex: Female

DRUGS (1)
  1. LORAZEPAM [Suspect]
     Active Substance: LORAZEPAM
     Indication: Product used for unknown indication
     Dosage: STRENGTH: 1MG
     Dates: start: 202209

REACTIONS (3)
  - Rhinorrhoea [Unknown]
  - Pruritus [Unknown]
  - Skin irritation [Unknown]

NARRATIVE: CASE EVENT DATE: 20220901
